FAERS Safety Report 6644239-3 (Version None)
Quarter: 2010Q1

REPORT INFORMATION
  Report Type: 
  Country: None (occurrence: None)
  Receive Date: 20100319
  Receipt Date: 20100319
  Transmission Date: 20100710
  Serious: Yes (Hospitalization)
  Sender: FDA-Public Use
  Company Number: None

PATIENT
  Age: 78 Year
  Weight: 92.72 kg

DRUGS (11)
  1. COUMADIN [Suspect]
     Indication: ATRIAL FIBRILLATION
     Dosage: 5MG MWFSUN PO
     Route: 048
  2. COUMADIN [Suspect]
     Indication: ATRIAL FIBRILLATION
     Dosage: 7.5MG TTHSAT PO
     Route: 048
  3. XANAX [Concomitant]
  4. HYDROCHLOROTHIAZIDE [Concomitant]
  5. LIPITOR [Concomitant]
  6. UROXATRAL [Concomitant]
  7. ZOFRAN [Concomitant]
  8. ZETIA [Concomitant]
  9. POTASSIUM CHLORIDE [Concomitant]
  10. ACETYLCYSTEINE [Concomitant]
  11. LOPRESSOR [Concomitant]

REACTIONS (1)
  - EPISTAXIS [None]
